FAERS Safety Report 4702923-2 (Version None)
Quarter: 2005Q2

REPORT INFORMATION
  Report Type: 
  Country: None (occurrence: None)
  Receive Date: 20050629
  Receipt Date: 20041104
  Transmission Date: 20051028
  Serious: Yes (Disabling)
  Sender: FDA-Public Use
  Company Number: US-ROCHE-385701

PATIENT
  Age: 37 Year
  Sex: Female
  Weight: 81.6 kg

DRUGS (1)
  1. ACCUTANE [Suspect]
     Indication: ACNE
     Route: 048
     Dates: start: 19930615, end: 19940615

REACTIONS (16)
  - ANXIETY [None]
  - COLITIS [None]
  - COLITIS ULCERATIVE [None]
  - CROHN'S DISEASE [None]
  - DEPRESSION [None]
  - GASTROINTESTINAL DISORDER [None]
  - GASTROOESOPHAGEAL REFLUX DISEASE [None]
  - HAND FRACTURE [None]
  - INFLAMMATORY BOWEL DISEASE [None]
  - INJURY [None]
  - INTERNAL INJURY [None]
  - INTESTINAL HAEMORRHAGE [None]
  - IRRITABLE BOWEL SYNDROME [None]
  - JOINT DISLOCATION [None]
  - RECTAL HAEMORRHAGE [None]
  - SINUSITIS [None]
